FAERS Safety Report 24010940 (Version 1)
Quarter: 2024Q2

REPORT INFORMATION
  Report Type: Report from Study
  Country: CN (occurrence: CN)
  Receive Date: 20240625
  Receipt Date: 20240625
  Transmission Date: 20240716
  Serious: Yes (Hospitalization, Other)
  Sender: FDA-Public Use
  Company Number: CN-002147023-NVSC2024CN111161

PATIENT
  Age: 54 Year
  Sex: Female

DRUGS (8)
  1. KISQALI [Suspect]
     Active Substance: RIBOCICLIB
     Indication: Breast cancer
     Dosage: 3 DOSAGE FORM, QD
     Route: 048
     Dates: start: 20240430, end: 20240522
  2. KISQALI [Suspect]
     Active Substance: RIBOCICLIB
     Dosage: 3 DOSAGE FORM, QD
     Route: 048
  3. KISQALI [Suspect]
     Active Substance: RIBOCICLIB
     Dosage: 2 DOSAGE FORM, QD (400 MG)
     Route: 048
     Dates: start: 20240611
  4. LEUCOGEN [Concomitant]
     Active Substance: LEUCOGEN
     Indication: Product used for unknown indication
     Dosage: UNK
     Route: 065
  5. CALTRATE WITH VITAMIN D [Concomitant]
     Active Substance: CALCIUM CARBONATE\CHOLECALCIFEROL
     Indication: Mineral supplementation
     Dosage: UNK
     Route: 065
  6. ZOLEDRONIC ACID [Concomitant]
     Active Substance: ZOLEDRONIC ACID
     Indication: Endocrine disorder
     Dosage: UNK
     Route: 065
  7. GOSERELIN [Concomitant]
     Active Substance: GOSERELIN
     Indication: Endocrine disorder
     Dosage: UNK
     Route: 065
  8. FULVESTRANT [Concomitant]
     Active Substance: FULVESTRANT
     Indication: Endocrine disorder
     Dosage: UNK
     Route: 065

REACTIONS (21)
  - Pyrexia [Recovered/Resolved]
  - Pneumonia [Unknown]
  - Carcinoembryonic antigen increased [Not Recovered/Not Resolved]
  - Decreased appetite [Not Recovered/Not Resolved]
  - Vomiting [Unknown]
  - Carbohydrate antigen 125 increased [Unknown]
  - Carbohydrate antigen 15-3 increased [Recovering/Resolving]
  - Carbohydrate antigen 19-9 increased [Unknown]
  - Anaemia [Unknown]
  - White blood cell count decreased [Unknown]
  - Haemoglobin decreased [Unknown]
  - Transaminases increased [Not Recovered/Not Resolved]
  - Alopecia [Not Recovered/Not Resolved]
  - Weight decreased [Unknown]
  - Concomitant disease aggravated [Unknown]
  - Influenza [Recovered/Resolved]
  - Insomnia [Not Recovered/Not Resolved]
  - Abdominal discomfort [Unknown]
  - Mental disorder [Unknown]
  - Malaise [Unknown]
  - Liver disorder [Unknown]

NARRATIVE: CASE EVENT DATE: 20240517
